FAERS Safety Report 5008075-6 (Version None)
Quarter: 2006Q2

REPORT INFORMATION
  Report Type: 
  Country: None (occurrence: None)
  Receive Date: 20060404
  Receipt Date: 20050614
  Transmission Date: 20061013
  Serious: Yes (Other)
  Sender: FDA-Public Use
  Company Number: 2005089214

PATIENT
  Age: 43 Year
  Sex: Male
  Weight: 81.6475 kg

DRUGS (5)
  1. GEODON [Suspect]
     Indication: BIPOLAR DISORDER
     Dosage: 160 MG (80 MG, 2 IN 1 D), ORAL
     Route: 048
     Dates: start: 20050124, end: 20050501
  2. GEODON [Suspect]
     Indication: PSYCHOTIC DISORDER
     Dosage: 160 MG (80 MG, 2 IN 1 D), ORAL
     Route: 048
     Dates: start: 20050124, end: 20050501
  3. ZOLOFT [Concomitant]
  4. AMBIEN [Concomitant]
  5. TRICOR [Concomitant]

REACTIONS (6)
  - AGITATION [None]
  - ANXIETY [None]
  - CONVULSION [None]
  - NERVOUSNESS [None]
  - RESTLESS LEGS SYNDROME [None]
  - TREMOR [None]
